FAERS Safety Report 23550268 (Version 1)
Quarter: 2024Q1

REPORT INFORMATION
  Report Type: Spontaneous
  Country: US (occurrence: US)
  Receive Date: 20240221
  Receipt Date: 20240221
  Transmission Date: 20240410
  Serious: No
  Sender: FDA-Public Use
  Company Number: US-GALDERMA-US2024001085

PATIENT

DRUGS (4)
  1. DIFFERIN DAILY DEEP CLEANSER WITH BPO [Suspect]
     Active Substance: BENZOYL PEROXIDE
     Indication: Acne
     Dosage: 1 DOSAGE FORM
     Route: 061
  2. DIFFERIN DAILY DEEP CLEANSER WITH BPO [Suspect]
     Active Substance: BENZOYL PEROXIDE
     Indication: Rosacea
  3. DIFFERIN GEL [Suspect]
     Active Substance: ADAPALENE
     Indication: Acne
     Dosage: 1 DOSAGE FORM
     Route: 061
  4. DIFFERIN GEL [Suspect]
     Active Substance: ADAPALENE
     Indication: Rosacea

REACTIONS (4)
  - Pruritus [Unknown]
  - Eyelid exfoliation [Unknown]
  - Intentional product use issue [Recovered/Resolved]
  - Drug effective for unapproved indication [Recovered/Resolved]
